FAERS Safety Report 11878156 (Version 1)
Quarter: 2015Q4

REPORT INFORMATION
  Report Type: Spontaneous
  Country: US (occurrence: None)
  Receive Date: 20151229
  Receipt Date: 20151229
  Transmission Date: 20160305
  Serious: Yes (Disabling)
  Sender: FDA-Public Use
  Company Number: None

PATIENT
  Age: 65 Year
  Sex: Male
  Weight: 90.72 kg

DRUGS (6)
  1. DAILY VITAMIN [Concomitant]
     Active Substance: VITAMINS
  2. COCONUT OIL [Concomitant]
     Active Substance: COCONUT OIL
  3. FISH OIL [Concomitant]
     Active Substance: FISH OIL
  4. LISINIPRIL 5MG [Concomitant]
     Active Substance: LISINOPRIL
  5. CIALIS [Suspect]
     Active Substance: TADALAFIL
     Indication: ERECTILE DYSFUNCTION
     Route: 048
     Dates: start: 201308, end: 201512
  6. VITAMIN E [Concomitant]
     Active Substance: .ALPHA.-TOCOPHEROL

REACTIONS (1)
  - Deafness unilateral [None]

NARRATIVE: CASE EVENT DATE: 20151203
